FAERS Safety Report 9065940 (Version 3)
Quarter: 2013Q1

REPORT INFORMATION
  Report Type: Spontaneous
  Country: JP (occurrence: JP)
  Receive Date: 20130214
  Receipt Date: 20130329
  Transmission Date: 20140127
  Serious: Yes (Life-Threatening, Hospitalization, Disabling, Other)
  Sender: FDA-Public Use
  Company Number: JP-SANOFI-AVENTIS-2013SA011255

PATIENT
  Age: 68 Year
  Sex: Male
  Weight: 60 kg

DRUGS (74)
  1. ELPLAT [Suspect]
     Indication: RECTAL CANCER
     Dosage: INFUSION SOLUTION?DOSE: 85 MG/M2
     Route: 041
     Dates: start: 20120130, end: 20120130
  2. ELPLAT [Suspect]
     Indication: RECTAL CANCER
     Dosage: INFUSION SOLUTION?DOSE: 85 MG/M2
     Route: 041
     Dates: start: 20120213, end: 20120213
  3. ELPLAT [Suspect]
     Indication: RECTAL CANCER
     Dosage: INFUSION SOLUTION?DOSE: 85 MG/M2
     Route: 041
     Dates: start: 20120305, end: 20120305
  4. ELPLAT [Suspect]
     Indication: RECTAL CANCER
     Dosage: INFUSION SOLUTION?DOSE: 85 MG/M2
     Route: 041
     Dates: start: 20120319, end: 20120319
  5. ELPLAT [Suspect]
     Indication: RECTAL CANCER
     Dosage: INFUSION SOLUTION?DOSE: 85 MG/M2
     Route: 041
     Dates: start: 20120409, end: 20120409
  6. ELPLAT [Suspect]
     Indication: RECTAL CANCER
     Dosage: INFUSION SOLUTION?DOSE: 85 MG/M2
     Route: 041
     Dates: start: 20120423, end: 20120423
  7. ELPLAT [Suspect]
     Indication: RECTAL CANCER
     Dosage: INFUSION SOLUTION?DOSE: 85 MG/M2
     Route: 041
     Dates: start: 20120514, end: 20120514
  8. ELPLAT [Suspect]
     Indication: RECTAL CANCER
     Dosage: INFUSION SOLUTION?DOSE: 85 MG/M2
     Route: 041
     Dates: start: 20120702, end: 20120702
  9. ELPLAT [Suspect]
     Indication: RECTAL CANCER
     Dosage: INFUSION SOLUTION?DOSE: 85 MG/M2
     Route: 041
     Dates: start: 20120717, end: 20120717
  10. ELPLAT [Suspect]
     Indication: RECTAL CANCER
     Dosage: INFUSION SOLUTION?DOSE: 85 MG/M2
     Route: 041
     Dates: start: 20120730, end: 20120730
  11. ELPLAT [Suspect]
     Indication: RECTAL CANCER
     Dosage: INFUSION SOLUTION?DOSE: 85 MG/M2
     Route: 041
     Dates: start: 20120813, end: 20120813
  12. ELPLAT [Suspect]
     Indication: RECTAL CANCER
     Dosage: INFUSION SOLUTION?DOSE: 85 MG/M2
     Route: 041
     Dates: start: 20120910, end: 20120910
  13. ELPLAT [Suspect]
     Indication: RECTAL CANCER
     Dosage: INFUSION SOLUTION?DOSE: 85 MG/M2
     Route: 041
     Dates: start: 20120925, end: 20120925
  14. ELPLAT [Suspect]
     Indication: RECTAL CANCER
     Dosage: INFUSION SOLUTION?DOSE: 85 MG/M2
     Route: 041
     Dates: start: 20121011, end: 20121011
  15. ELPLAT [Suspect]
     Indication: RECTAL CANCER
     Dosage: INFUSION SOLUTION?DOSE: 85 MG/M2
     Route: 041
     Dates: start: 20121108, end: 20121108
  16. ELPLAT [Suspect]
     Indication: RECTAL CANCER
     Dosage: INFUSION SOLUTION?DOSE: 85 MG/M2
     Route: 041
     Dates: start: 20121122, end: 20121122
  17. VECTIBIX [Suspect]
     Indication: RECTAL CANCER
     Route: 041
     Dates: start: 20120130, end: 20120130
  18. VECTIBIX [Suspect]
     Indication: RECTAL CANCER
     Route: 041
     Dates: start: 20120213, end: 20120213
  19. VECTIBIX [Suspect]
     Indication: RECTAL CANCER
     Route: 041
     Dates: start: 20120319, end: 20120319
  20. VECTIBIX [Suspect]
     Indication: RECTAL CANCER
     Route: 041
     Dates: start: 20120702, end: 20120702
  21. VECTIBIX [Suspect]
     Indication: RECTAL CANCER
     Route: 041
     Dates: start: 20120717, end: 20120717
  22. VECTIBIX [Suspect]
     Indication: RECTAL CANCER
     Route: 041
     Dates: start: 20120730, end: 20120730
  23. VECTIBIX [Suspect]
     Indication: RECTAL CANCER
     Route: 041
     Dates: start: 20120813, end: 20120813
  24. VECTIBIX [Suspect]
     Indication: RECTAL CANCER
     Route: 041
     Dates: start: 20120910, end: 20120910
  25. VECTIBIX [Suspect]
     Indication: RECTAL CANCER
     Route: 041
     Dates: start: 20120925, end: 20120925
  26. VECTIBIX [Suspect]
     Indication: RECTAL CANCER
     Route: 041
     Dates: start: 20121011, end: 20121011
  27. VECTIBIX [Suspect]
     Indication: RECTAL CANCER
     Route: 041
     Dates: start: 20121108, end: 20121108
  28. VECTIBIX [Suspect]
     Indication: RECTAL CANCER
     Route: 041
     Dates: start: 20121122, end: 20121122
  29. 5-FU [Suspect]
     Indication: RECTAL CANCER
     Dosage: DOSE: 600 MG/M2
     Route: 040
     Dates: start: 20120213, end: 20120214
  30. 5-FU [Suspect]
     Indication: RECTAL CANCER
     Dosage: DOSE: 400 MG/M2
     Route: 040
     Dates: start: 20120130, end: 20120131
  31. 5-FU [Suspect]
     Indication: RECTAL CANCER
     Route: 041
     Dates: start: 20121122, end: 20121123
  32. 5-FU [Suspect]
     Indication: RECTAL CANCER
     Dosage: DOSE: 600 MG/M2
     Route: 041
     Dates: start: 20120130, end: 20120131
  33. 5-FU [Suspect]
     Indication: RECTAL CANCER
     Route: 040
     Dates: start: 20121122, end: 20121123
  34. 5-FU [Suspect]
     Indication: RECTAL CANCER
     Route: 041
     Dates: start: 20121108, end: 20121109
  35. 5-FU [Suspect]
     Indication: RECTAL CANCER
     Route: 040
     Dates: start: 20121108, end: 20121109
  36. 5-FU [Suspect]
     Indication: RECTAL CANCER
     Route: 041
     Dates: start: 20121011, end: 20121012
  37. 5-FU [Suspect]
     Indication: RECTAL CANCER
     Route: 040
     Dates: start: 20121011, end: 20121012
  38. 5-FU [Suspect]
     Indication: RECTAL CANCER
     Route: 041
     Dates: start: 20120925, end: 20120926
  39. 5-FU [Suspect]
     Indication: RECTAL CANCER
     Route: 040
     Dates: start: 20120925, end: 20120926
  40. 5-FU [Suspect]
     Indication: RECTAL CANCER
     Route: 041
     Dates: start: 20120910, end: 20120911
  41. 5-FU [Suspect]
     Indication: RECTAL CANCER
     Route: 040
     Dates: start: 20120910, end: 20120911
  42. 5-FU [Suspect]
     Indication: RECTAL CANCER
     Route: 041
     Dates: start: 20120813, end: 20120814
  43. 5-FU [Suspect]
     Indication: RECTAL CANCER
     Route: 040
     Dates: start: 20120813, end: 20120814
  44. 5-FU [Suspect]
     Indication: RECTAL CANCER
     Route: 041
     Dates: start: 20120730, end: 20120731
  45. 5-FU [Suspect]
     Indication: RECTAL CANCER
     Route: 040
     Dates: start: 20120730, end: 20120731
  46. 5-FU [Suspect]
     Indication: RECTAL CANCER
     Route: 041
     Dates: start: 20120717, end: 20120718
  47. 5-FU [Suspect]
     Indication: RECTAL CANCER
     Route: 040
     Dates: start: 20120717, end: 20120718
  48. 5-FU [Suspect]
     Indication: RECTAL CANCER
     Route: 041
     Dates: start: 20120702, end: 20120703
  49. 5-FU [Suspect]
     Indication: RECTAL CANCER
     Route: 040
     Dates: start: 20120702, end: 20120703
  50. 5-FU [Suspect]
     Indication: RECTAL CANCER
     Route: 041
     Dates: start: 20120514, end: 20120515
  51. 5-FU [Suspect]
     Indication: RECTAL CANCER
     Route: 040
     Dates: start: 20120514, end: 20120515
  52. 5-FU [Suspect]
     Indication: RECTAL CANCER
     Route: 041
     Dates: start: 20120423, end: 20120424
  53. 5-FU [Suspect]
     Indication: RECTAL CANCER
     Route: 040
     Dates: start: 20120423, end: 20120424
  54. 5-FU [Suspect]
     Indication: RECTAL CANCER
     Route: 041
     Dates: start: 20120409, end: 20120410
  55. 5-FU [Suspect]
     Indication: RECTAL CANCER
     Route: 040
     Dates: start: 20120409, end: 20120410
  56. 5-FU [Suspect]
     Indication: RECTAL CANCER
     Route: 041
     Dates: start: 20120319, end: 20120320
  57. 5-FU [Suspect]
     Indication: RECTAL CANCER
     Route: 040
     Dates: start: 20120319, end: 20120320
  58. 5-FU [Suspect]
     Indication: RECTAL CANCER
     Route: 041
     Dates: start: 20120305, end: 20120306
  59. 5-FU [Suspect]
     Indication: RECTAL CANCER
     Route: 040
     Dates: start: 20120305, end: 20120306
  60. 5-FU [Suspect]
     Indication: RECTAL CANCER
     Dosage: DOSE: 600 MG/M2
     Route: 041
     Dates: start: 20120213, end: 20120214
  61. CALCIUM LEVOFOLINATE [Concomitant]
     Indication: RECTAL CANCER
     Dosage: DOSE: 100 MG/M2
     Route: 041
     Dates: start: 20120130, end: 20121123
  62. ALOXI [Concomitant]
     Dates: start: 20120130, end: 20121122
  63. DECADRON [Concomitant]
     Dates: start: 20120130, end: 20121122
  64. RED BLOOD CELLS, LEUCOCYTE DEPLETED [Concomitant]
     Dates: start: 20111228, end: 20111231
  65. JUZENTAIHOTO [Concomitant]
     Dates: start: 20120131, end: 20130130
  66. MINOPEN [Concomitant]
     Dates: start: 20120204, end: 20130130
  67. CLEXANE [Concomitant]
     Dates: start: 20120502, end: 20120507
  68. WARFARIN [Concomitant]
     Dates: start: 20120508, end: 20120508
  69. VENOGLOBULIN-IH [Concomitant]
     Dates: start: 20120626, end: 20121216
  70. LYRICA [Concomitant]
     Dates: start: 20120803, end: 20120815
  71. CIPROXAN [Concomitant]
     Dates: start: 20121222, end: 20121228
  72. ALBUMIN [Concomitant]
     Dates: start: 20121222, end: 20121224
  73. ZYVOX [Concomitant]
     Dates: start: 20121228, end: 20130110
  74. FUNGUARD [Concomitant]
     Dates: start: 20130118, end: 20130127

REACTIONS (7)
  - Rhabdomyolysis [Not Recovered/Not Resolved]
  - Staphylococcal sepsis [Recovered/Resolved]
  - Fungal infection [Not Recovered/Not Resolved]
  - Skin erosion [Recovered/Resolved]
  - Paronychia [Recovered/Resolved]
  - Neuropathy peripheral [Not Recovered/Not Resolved]
  - White blood cell count decreased [Unknown]
